FAERS Safety Report 7694059-6 (Version None)
Quarter: 2011Q3

REPORT INFORMATION
  Report Type: 
  Country: None (occurrence: None)
  Receive Date: 20110819
  Receipt Date: 20110805
  Transmission Date: 20111222
  Serious: Yes (Other)
  Sender: FDA-Public Use
  Company Number: JP-CELGENEUS-087-21660-11070547

PATIENT
  Sex: Female
  Weight: 55 kg

DRUGS (6)
  1. CATLEP [Concomitant]
     Indication: TUMOUR PAIN
     Route: 065
  2. NOVORAPID [Concomitant]
     Indication: DIABETES MELLITUS
     Dosage: 12 IU (INTERNATIONAL UNIT)
     Route: 065
     Dates: start: 20110426
  3. LEVEMIR [Concomitant]
     Indication: DIABETES MELLITUS
     Dosage: 3 IU (INTERNATIONAL UNIT)
     Route: 065
     Dates: start: 20110426
  4. VFEND [Concomitant]
     Route: 065
     Dates: start: 20110706
  5. LOXONIN [Concomitant]
     Indication: TUMOUR PAIN
     Route: 065
  6. ABRAXANE [Suspect]
     Dosage: 228 MILLIGRAM
     Route: 041
     Dates: start: 20110523, end: 20110620

REACTIONS (1)
  - LUNG INFECTION [None]
